FAERS Safety Report 11424581 (Version 2)
Quarter: 2015Q3

REPORT INFORMATION
  Report Type: Spontaneous
  Country: FR (occurrence: FR)
  Receive Date: 20150827
  Receipt Date: 20150915
  Transmission Date: 20151125
  Serious: Yes (Hospitalization)
  Sender: FDA-Public Use
  Company Number: FR-COREPHARMA LLC-2015COR00178

PATIENT
  Age: 29 Year
  Sex: Female

DRUGS (1)
  1. PHENYTOIN. [Suspect]
     Active Substance: PHENYTOIN
     Indication: EPILEPSY
     Dosage: UNK
     Dates: start: 2012, end: 2013

REACTIONS (2)
  - Epilepsy [Recovered/Resolved]
  - Product substitution issue [Recovered/Resolved]
